FAERS Safety Report 9339753 (Version 1)
Quarter: 2013Q2

REPORT INFORMATION
  Report Type: Spontaneous
  Country: BR (occurrence: BR)
  Receive Date: 20130610
  Receipt Date: 20130610
  Transmission Date: 20140414
  Serious: Yes (Other)
  Sender: FDA-Public Use
  Company Number: PHHY2013BR058330

PATIENT
  Sex: Male

DRUGS (3)
  1. SANDIMMUN NEORAL / OL [Suspect]
     Dosage: 100 MG, UNK
  2. SANDIMMUN NEORAL / OL [Suspect]
     Dosage: 50 MG, UNK
  3. SANDIMMUN NEORAL / OL [Suspect]
     Dosage: 25 MG, UNK

REACTIONS (1)
  - General physical health deterioration [Unknown]
